FAERS Safety Report 16322173 (Version 1)
Quarter: 2019Q2

REPORT INFORMATION
  Report Type: Spontaneous
  Country: US (occurrence: US)
  Receive Date: 20190516
  Receipt Date: 20190516
  Transmission Date: 20190711
  Serious: Yes (Hospitalization, Other)
  Sender: FDA-Public Use
  Company Number: US-TEVA-2019-US-1049568

PATIENT
  Age: 53 Year
  Sex: Female

DRUGS (11)
  1. KETAMINE [Suspect]
     Active Substance: KETAMINE
     Indication: BREAKTHROUGH PAIN
     Dosage: IV DRIP ADMINISTERED FROM DAY 10 TO 14 OF ADMISSION (TOTAL 520MG ADMINISTERED)
     Route: 041
  2. PROPOFOL. [Concomitant]
     Active Substance: PROPOFOL
     Dosage: ON DAY 9 OF ADMISSION; ADMINISTERED FURTHER DOSES ON DAY 18 AND 20 OF ADMISSION (THERAPY COMPLETED)
     Route: 065
  3. MORPHINE [Concomitant]
     Active Substance: MORPHINE
     Indication: BREAKTHROUGH PAIN
     Dosage: ON DAY 10 OF ADMISSION; RECEIVED UNSPECIFIED ORAL MORPHINE EQUIVALENTS AT A REDUCED DOSE
     Route: 065
  4. FENTANYL. [Concomitant]
     Active Substance: FENTANYL
     Dosage: ON DAY 16 OF ADMISSION
     Route: 065
  5. KETAMINE [Suspect]
     Active Substance: KETAMINE
     Indication: PROCEDURAL PAIN
     Dosage: 10 MG BOLUSES (01.-0.15 MG/KG) 2-3 TIMES A DAY (TOTAL 30MG ON DAY 7, 8 AND 9 OF ADMISSION).
     Route: 040
  6. PROPOFOL. [Concomitant]
     Active Substance: PROPOFOL
     Dosage: ON DAY 13 OF ADMISSION; ADMINISTERED FURTHER DOSES ON DAY 18 AND 20 OF ADMISSION (THERAPY COMPLETED)
     Route: 065
  7. MIDAZOLAM [Concomitant]
     Active Substance: MIDAZOLAM HYDROCHLORIDE
     Indication: BREAKTHROUGH PAIN
     Dosage: ON DAY 11 OF ADMISSION
     Route: 065
  8. MIDAZOLAM [Concomitant]
     Active Substance: MIDAZOLAM HYDROCHLORIDE
     Indication: BREAKTHROUGH PAIN
     Dosage: ON DAY 16 OF ADMISSION
     Route: 065
  9. HYDROMORPHONE [Suspect]
     Active Substance: HYDROMORPHONE
     Indication: PROCEDURAL PAIN
     Route: 065
  10. DULOXETINE. [Suspect]
     Active Substance: DULOXETINE
     Indication: SEASONAL AFFECTIVE DISORDER
     Dosage: ON DAY 7 AND 8 OF ADMISSION
     Route: 065
  11. KETAMINE [Suspect]
     Active Substance: KETAMINE
     Indication: SEDATIVE THERAPY
     Dosage: TOTAL 20 MG GIVEN OVER AN HOUR
     Route: 065

REACTIONS (3)
  - Circadian rhythm sleep disorder [Recovered/Resolved]
  - Mania [Recovered/Resolved]
  - Drug ineffective [Unknown]
